FAERS Safety Report 5421659-6 (Version None)
Quarter: 2007Q3

REPORT INFORMATION
  Report Type: 
  Country: None (occurrence: None)
  Receive Date: 20070821
  Receipt Date: 20070809
  Transmission Date: 20080115
  Serious: Yes (Hospitalization)
  Sender: FDA-Public Use
  Company Number: JP-PFIZER INC-2007065189

PATIENT
  Age: 82 Year
  Sex: Male

DRUGS (7)
  1. SALAZOPYRIN [Suspect]
     Route: 048
  2. WARFARIN [Suspect]
  3. NORVASC [Concomitant]
  4. LOSARTAN POTASSIUM [Concomitant]
  5. PRAVASTATIN [Concomitant]
  6. SELBEX [Concomitant]
  7. ALLOPURINOL [Concomitant]

REACTIONS (1)
  - FAECES DISCOLOURED [None]
